FAERS Safety Report 7104883-6 (Version None)
Quarter: 2010Q4

REPORT INFORMATION
  Report Type: 
  Country: None (occurrence: None)
  Receive Date: 20101116
  Receipt Date: 20101112
  Transmission Date: 20110411
  Serious: Yes (Hospitalization)
  Sender: FDA-Public Use
  Company Number: US-BRISTOL-MYERS SQUIBB COMPANY-15163405

PATIENT
  Age: 72 Year
  Sex: Female
  Weight: 50 kg

DRUGS (7)
  1. SPRYCEL [Suspect]
     Indication: BREAST CANCER METASTATIC
     Dosage: 140 MG DAILY FOR 112DAYS, TOTALLING 15,680MG; LAST ADMINS ON 24MAY10; REMOVED FRM PROTOCOL 11JUN10
     Route: 048
     Dates: start: 20100201, end: 20100525
  2. CALCIUM + VITAMIN D [Concomitant]
  3. FISH OIL [Concomitant]
  4. MULTI-VITAMINS [Concomitant]
  5. ZYRTEC [Concomitant]
  6. ARANESP [Concomitant]
  7. ROCEPHIN [Concomitant]

REACTIONS (5)
  - DYSPNOEA [None]
  - OEDEMA PERIPHERAL [None]
  - PLEURAL EFFUSION [None]
  - PNEUMONIA [None]
  - PULMONARY EMBOLISM [None]
